FAERS Safety Report 11266553 (Version 3)
Quarter: 2015Q3

REPORT INFORMATION
  Report Type: Report from Study
  Country: BR (occurrence: BR)
  Receive Date: 20150713
  Receipt Date: 20150923
  Transmission Date: 20151125
  Serious: Yes (Hospitalization, Other)
  Sender: FDA-Public Use
  Company Number: PHHY2015BR083271

PATIENT
  Age: 54 Year
  Sex: Female
  Weight: 92 kg

DRUGS (7)
  1. ARADOIS [Concomitant]
     Active Substance: LOSARTAN POTASSIUM
     Indication: HYPERTENSION
     Dosage: 2 DF, QD
     Route: 048
     Dates: start: 2013
  2. DEPURA [Concomitant]
     Active Substance: CHOLECALCIFEROL
     Indication: VITAMIN SUPPLEMENTATION
     Dosage: 10 DRP, QD
     Route: 065
  3. OMEPRAZOL//OMEPRAZOLE [Concomitant]
     Indication: GASTRIC DISORDER
     Dosage: 2 DF, QD
     Route: 048
     Dates: start: 2011
  4. SANDOSTATIN LAR DEPOT [Suspect]
     Active Substance: OCTREOTIDE ACETATE
     Indication: NEUROENDOCRINE TUMOUR
     Dosage: 1 DF, QMO (1 APPLICATION EVERY 28 DAYS)
     Route: 030
  5. ALPRAZOLAM. [Concomitant]
     Active Substance: ALPRAZOLAM
     Indication: ANXIOLYTIC THERAPY
     Dosage: 2 DF, QD
     Route: 048
     Dates: start: 2011
  6. DOMPERIDONE [Concomitant]
     Active Substance: DOMPERIDONE
     Indication: GASTRIC DISORDER
     Dosage: 1 DF, QD
     Route: 048
     Dates: start: 2011
  7. ATENOLOL. [Concomitant]
     Active Substance: ATENOLOL
     Indication: HYPERTENSION
     Dosage: 1 DF, QD
     Route: 048

REACTIONS (9)
  - Dysphonia [Not Recovered/Not Resolved]
  - Alopecia [Not Recovered/Not Resolved]
  - Weight decreased [Recovering/Resolving]
  - Blood pressure increased [Unknown]
  - Onychoclasis [Not Recovered/Not Resolved]
  - Anxiety [Unknown]
  - Malaise [Unknown]
  - Dyspnoea [Recovering/Resolving]
  - Weight increased [Unknown]

NARRATIVE: CASE EVENT DATE: 20150625
